FAERS Safety Report 17412315 (Version 6)
Quarter: 2021Q1

REPORT INFORMATION
  Report Type: Report from Study
  Country: GB (occurrence: GB)
  Receive Date: 20200213
  Receipt Date: 20210311
  Transmission Date: 20210419
  Serious: Yes (Death, Hospitalization, Other)
  Sender: FDA-Public Use
  Company Number: GB-ACCORD-172272

PATIENT
  Age: 80 Year
  Sex: Female

DRUGS (16)
  1. MORPHINE SULPHATE [Concomitant]
     Active Substance: MORPHINE SULFATE
  2. FLUCLOXACILLIN [Concomitant]
     Active Substance: FLUCLOXACILLIN
     Indication: CELLULITIS
     Route: 048
     Dates: start: 20160106
  3. FLUCLOXACILLIN [Concomitant]
     Active Substance: FLUCLOXACILLIN
     Route: 048
     Dates: start: 20160205, end: 20160211
  4. TRASTUZUMAB. [Suspect]
     Active Substance: TRASTUZUMAB
     Indication: HER2 POSITIVE BREAST CANCER
     Route: 058
     Dates: start: 20151223, end: 20160316
  5. RAMIPRIL. [Concomitant]
     Active Substance: RAMIPRIL
     Route: 048
  6. CO?DYDRAMOL [Concomitant]
     Active Substance: ACETAMINOPHEN\DIHYDROCODEINE
     Indication: PROPHYLAXIS
     Dosage: 10/500 MG
     Route: 048
     Dates: start: 20160130, end: 20160204
  7. ZOLEDRONIC ACID [Concomitant]
     Active Substance: ZOLEDRONIC ACID
     Route: 042
     Dates: start: 20160203
  8. FUROSEMIDE. [Concomitant]
     Active Substance: FUROSEMIDE
     Indication: PROPHYLAXIS
     Route: 048
     Dates: start: 20160208, end: 20160212
  9. ATENOLOL/ATENOLOL HYDROCHLORIDE [Concomitant]
     Active Substance: ATENOLOL HYDROCHLORIDE
     Route: 054
  10. LETROZOLE. [Suspect]
     Active Substance: LETROZOLE
     Indication: HER2 POSITIVE BREAST CANCER
     Route: 048
     Dates: start: 20151103
  11. TINZAPARIN/TINZAPARIN SODIUM [Concomitant]
     Active Substance: TINZAPARIN SODIUM
     Dosage: DOSE: 3500 UNITS
     Route: 058
     Dates: start: 20160302, end: 20160314
  12. BENDROFLUMETHIAZIDE [Concomitant]
     Active Substance: BENDROFLUMETHIAZIDE
     Route: 048
  13. NORMAL SALINE [Concomitant]
     Active Substance: SODIUM CHLORIDE
     Indication: PROPHYLAXIS
     Dosage: PRN
     Route: 050
     Dates: start: 20160130, end: 20160130
  14. WARFARIN [Concomitant]
     Active Substance: WARFARIN
     Route: 048
     Dates: end: 20160217
  15. PARACETAMOL [Concomitant]
     Active Substance: ACETAMINOPHEN
     Indication: ANALGESIC THERAPY
     Route: 065
     Dates: start: 20160130, end: 20160308
  16. SENNA ALEXANDRINA/SENNA ALEXANDRINA EXTRACT/SENNA ALEXANDRINA FRUIT/SENNA ALEXANDRINA LEAF/SENNA ALE [Concomitant]
     Active Substance: HERBALS\SENNOSIDES

REACTIONS (20)
  - Confusional state [Recovered/Resolved]
  - Vomiting [Recovered/Resolved]
  - Skin disorder [Not Recovered/Not Resolved]
  - Cough [Recovered/Resolved]
  - Diverticulum [Not Recovered/Not Resolved]
  - Pain [Not Recovered/Not Resolved]
  - International normalised ratio increased [Recovered/Resolved]
  - Anaemia [Not Recovered/Not Resolved]
  - Oropharyngeal pain [Recovered/Resolved]
  - Agitation [Unknown]
  - Cellulitis [Not Recovered/Not Resolved]
  - Hypoglycaemia [Recovered/Resolved]
  - Hyperglycaemia [Recovered/Resolved]
  - Acidosis [Recovered/Resolved]
  - Hypotension [Recovered/Resolved]
  - Sepsis [Not Recovered/Not Resolved]
  - Rectal haemorrhage [Recovered/Resolved]
  - Blood creatinine increased [Recovered/Resolved]
  - Constipation [Not Recovered/Not Resolved]
  - Melaena [Recovered/Resolved]

NARRATIVE: CASE EVENT DATE: 20160119
